APPROVED DRUG PRODUCT: RIBAVIRIN
Active Ingredient: RIBAVIRIN
Strength: 600MG
Dosage Form/Route: TABLET;ORAL
Application: A077094 | Product #003
Applicant: ZYDUS PHARMACEUTICALS USA INC
Approved: Mar 16, 2007 | RLD: No | RS: No | Type: DISCN